FAERS Safety Report 5903805-0 (Version None)
Quarter: 2008Q3

REPORT INFORMATION
  Report Type: 
  Country: None (occurrence: None)
  Receive Date: 20080919
  Receipt Date: 20080714
  Transmission Date: 20090109
  Serious: Yes (Other)
  Sender: FDA-Public Use
  Company Number: US-WYE-H05079808

PATIENT
  Age: 55 Year

DRUGS (3)
  1. PRISTIQ [Suspect]
     Indication: DEPRESSION
     Dosage: 50 MG 1X PER 1 DAY, ORAL
     Route: 048
     Dates: start: 20080712
  2. DOXEPIN HCL [Suspect]
  3. VISTARIL (HYDROXYZINE HYDROCHLORIDE) [Concomitant]

REACTIONS (1)
  - PITTING OEDEMA [None]
